FAERS Safety Report 25492126 (Version 2)
Quarter: 2025Q3

REPORT INFORMATION
  Report Type: Spontaneous
  Country: CA (occurrence: CA)
  Receive Date: 20250630
  Receipt Date: 20250703
  Transmission Date: 20251020
  Serious: Yes (Hospitalization)
  Sender: CHEPLAPHARM
  Company Number: CA-ASTRAZENECA-202506CAN019698CA

PATIENT
  Age: 22 Year
  Sex: Male

DRUGS (10)
  1. QUETIAPINE [Suspect]
     Active Substance: QUETIAPINE
     Indication: Psychotic disorder
     Dosage: SLOW RELEASE TABLET?DAILY DOSE: 300 MILLIGRAM
  2. QUETIAPINE [Suspect]
     Active Substance: QUETIAPINE
     Indication: Neuronal ceroid lipofuscinosis
     Dosage: SLOW RELEASE TABLET?DAILY DOSE: 300 MILLIGRAM
  3. QUETIAPINE [Suspect]
     Active Substance: QUETIAPINE
     Indication: Psychotic disorder
     Dosage: SLOW RELEASE TABLET?DAILY DOSE: 200 MILLIGRAM
  4. QUETIAPINE [Suspect]
     Active Substance: QUETIAPINE
     Indication: Neuronal ceroid lipofuscinosis
     Dosage: SLOW RELEASE TABLET?DAILY DOSE: 200 MILLIGRAM
  5. OLANZAPINE [Suspect]
     Active Substance: OLANZAPINE
     Indication: Psychotic disorder
     Dosage: UNK?DAILY DOSE: 2.5 MILLIGRAM
  6. OLANZAPINE [Suspect]
     Active Substance: OLANZAPINE
     Indication: Neuronal ceroid lipofuscinosis
     Dosage: UNK?DAILY DOSE: 2.5 MILLIGRAM
  7. OLANZAPINE [Suspect]
     Active Substance: OLANZAPINE
     Indication: Psychotic disorder
     Dosage: UNK?DAILY DOSE: 1.25 MILLIGRAM
  8. OLANZAPINE [Suspect]
     Active Substance: OLANZAPINE
     Indication: Neuronal ceroid lipofuscinosis
     Dosage: UNK?DAILY DOSE: 1.25 MILLIGRAM
  9. RISPERIDONE [Suspect]
     Active Substance: RISPERIDONE
     Indication: Psychotic disorder
     Dosage: UNK?DAILY DOSE: 0.25 MILLIGRAM
  10. RISPERIDONE [Suspect]
     Active Substance: RISPERIDONE
     Indication: Neuronal ceroid lipofuscinosis
     Dosage: UNK?DAILY DOSE: 0.25 MILLIGRAM

REACTIONS (2)
  - Condition aggravated [Recovered/Resolved]
  - Extrapyramidal disorder [Recovered/Resolved]
